FAERS Safety Report 8676583 (Version 4)
Quarter: 2013Q4

REPORT INFORMATION
  Report Type: Spontaneous
  Country: US (occurrence: US)
  Receive Date: 20120722
  Receipt Date: 20131101
  Transmission Date: 20140711
  Serious: No
  Sender: FDA-Public Use
  Company Number: US-009507513-1207USA005278

PATIENT
  Age: 55 Year
  Sex: Male

DRUGS (4)
  1. PEGINTRON [Suspect]
     Indication: HEPATITIS C
     Dosage: 120 MICROGRAM, QW
     Route: 058
     Dates: start: 201010
  2. PEGINTRON [Suspect]
     Dosage: 120 UNK, UNK
     Route: 058
     Dates: start: 20120620, end: 20120816
  3. RIBASPHERE [Suspect]
     Indication: HEPATITIS C
     Dosage: UNK
  4. TELAPREVIR [Suspect]
     Indication: HEPATITIS C
     Dosage: UNK
     Dates: start: 20120713

REACTIONS (8)
  - Anaemia [Unknown]
  - Weight decreased [Unknown]
  - Alopecia [Unknown]
  - Headache [Unknown]
  - Urticaria [Recovering/Resolving]
  - Haemorrhoids [Recovering/Resolving]
  - Vision blurred [Recovering/Resolving]
  - Renal function test abnormal [Recovering/Resolving]
